FAERS Safety Report 12891855 (Version 1)
Quarter: 2016Q4

REPORT INFORMATION
  Report Type: Spontaneous
  Country: FR (occurrence: FR)
  Receive Date: 20161028
  Receipt Date: 20161028
  Transmission Date: 20170207
  Serious: Yes (Hospitalization)
  Sender: FDA-Public Use
  Company Number: FR-ACCORD-045220

PATIENT
  Age: 64 Year
  Sex: Male

DRUGS (14)
  1. ONBREZ [Concomitant]
     Active Substance: INDACATEROL
  2. LYRICA [Concomitant]
     Active Substance: PREGABALIN
  3. ALLOPURINOL. [Concomitant]
     Active Substance: ALLOPURINOL
  4. ALPRAZOLAM. [Concomitant]
     Active Substance: ALPRAZOLAM
  5. LAROXYL [Concomitant]
     Active Substance: AMITRIPTYLINE
  6. PLAVIX [Concomitant]
     Active Substance: CLOPIDOGREL BISULFATE
  7. EUPANTOL [Concomitant]
     Active Substance: PANTOPRAZOLE SODIUM
  8. ZOPICLONE [Concomitant]
     Active Substance: ZOPICLONE
  9. DAFLON [Concomitant]
     Active Substance: DIOSMIN\HESPERIDIN
  10. CISPLATINE ACCORD [Suspect]
     Active Substance: CISPLATIN
     Indication: SQUAMOUS CELL CARCINOMA
     Dosage: STRENGTH: 1 MG/ML
     Route: 042
     Dates: start: 20160811, end: 20160901
  11. SIMVASTATIN. [Concomitant]
     Active Substance: SIMVASTATIN
  12. METFORMIN [Concomitant]
     Active Substance: METFORMIN HYDROCHLORIDE
  13. NEBILOX [Concomitant]
     Active Substance: NEBIVOLOL HYDROCHLORIDE
  14. AMIODARONE [Concomitant]
     Active Substance: AMIODARONE

REACTIONS (2)
  - Appendicitis [Recovered/Resolved]
  - Acute kidney injury [Recovering/Resolving]

NARRATIVE: CASE EVENT DATE: 20160824
